FAERS Safety Report 13568785 (Version 1)
Quarter: 2017Q2

REPORT INFORMATION
  Report Type: Spontaneous
  Country: US (occurrence: US)
  Receive Date: 20170522
  Receipt Date: 20170522
  Transmission Date: 20170830
  Serious: No
  Sender: FDA-Public Use
  Company Number: US-NEOS THERAPEUTICS, LP-2017NEO00033

PATIENT
  Age: 48 Year
  Sex: Male
  Weight: 65.31 kg

DRUGS (5)
  1. ADZENYS XR-ODT [Suspect]
     Active Substance: AMPHETAMINE
     Indication: ATTENTION DEFICIT/HYPERACTIVITY DISORDER
     Dosage: 12.5 MG, 1X/DAY
     Route: 048
     Dates: start: 20170321
  2. SINGULAIR [Concomitant]
     Active Substance: MONTELUKAST SODIUM
  3. LAMICTAL [Concomitant]
     Active Substance: LAMOTRIGINE
  4. FLONASE [Concomitant]
     Active Substance: FLUTICASONE PROPIONATE
  5. ESCITALOPRAM [Concomitant]
     Active Substance: ESCITALOPRAM OXALATE

REACTIONS (1)
  - Drug effect incomplete [Not Recovered/Not Resolved]

NARRATIVE: CASE EVENT DATE: 201704
